FAERS Safety Report 14992817 (Version 1)
Quarter: 2018Q2

REPORT INFORMATION
  Report Type: Spontaneous
  Country: US (occurrence: US)
  Receive Date: 20180517
  Receipt Date: 20180517
  Transmission Date: 20180711
  Serious: No
  Sender: FDA-Public Use
  Company Number: None

PATIENT
  Sex: Female
  Weight: 72.57 kg

DRUGS (14)
  1. GABAPENTIN. [Concomitant]
     Active Substance: GABAPENTIN
  2. MELOXICAM. [Concomitant]
     Active Substance: MELOXICAM
  3. OSCAL + D [Concomitant]
  4. C [Concomitant]
  5. BROMPHENIRAMINE MAL, PSEUDOEPHEDRINE HCL, AND DEXTROMETHORPHAN HBR [Suspect]
     Active Substance: BROMPHENIRAMINE MALEATE\DEXTROMETHORPHAN HYDROBROMIDE\PSEUDOEPHEDRINE HYDROCHLORIDE
     Indication: UPPER RESPIRATORY TRACT INFECTION
     Dosage: QUANTITY:10 ML MILLILITRE(S);?
     Route: 048
     Dates: start: 20180308, end: 20180312
  6. ASPIRIN. [Concomitant]
     Active Substance: ASPIRIN
  7. B6 [Concomitant]
     Active Substance: PYRIDOXINE HYDROCHLORIDE
  8. VITAMIN B12 [Concomitant]
     Active Substance: CYANOCOBALAMIN
  9. TRAZODONE [Concomitant]
     Active Substance: TRAZODONE HYDROCHLORIDE
  10. COQ10 [Concomitant]
     Active Substance: UBIDECARENONE
  11. CITALOPRAM [Concomitant]
     Active Substance: CITALOPRAM HYDROBROMIDE
  12. SENIOR MULTI [Concomitant]
  13. ALPRAZOLAM. [Concomitant]
     Active Substance: ALPRAZOLAM
  14. FISH OIL [Concomitant]
     Active Substance: FISH OIL

REACTIONS (7)
  - Upper respiratory tract infection [None]
  - Hyperhidrosis [None]
  - Mental disorder [None]
  - Nausea [None]
  - Abdominal discomfort [None]
  - Weight decreased [None]
  - Nervousness [None]
